FAERS Safety Report 5664384-9 (Version None)
Quarter: 2008Q1

REPORT INFORMATION
  Report Type: 
  Country: None (occurrence: None)
  Receive Date: 20080314
  Receipt Date: 20080311
  Transmission Date: 20080703
  Serious: Yes (Hospitalization)
  Sender: FDA-Public Use
  Company Number: AU-BRISTOL-MYERS SQUIBB COMPANY-14111686

PATIENT
  Age: 85 Year
  Sex: Female

DRUGS (1)
  1. AVAPRO-HCT TABS 300 MG/12.5 MG [Suspect]
     Indication: ESSENTIAL HYPERTENSION
     Route: 048
     Dates: end: 20051031

REACTIONS (3)
  - HYPONATRAEMIA [None]
  - ORAL INTAKE REDUCED [None]
  - RETCHING [None]
